FAERS Safety Report 22352914 (Version 1)
Quarter: 2023Q2

REPORT INFORMATION
  Report Type: Spontaneous
  Country: US (occurrence: US)
  Receive Date: 20230523
  Receipt Date: 20230523
  Transmission Date: 20230721
  Serious: Yes (Hospitalization, Other)
  Sender: FDA-Public Use
  Company Number: US-BRISTOL-MYERS SQUIBB COMPANY-2023-068876

PATIENT
  Age: 83 Year
  Sex: Female

DRUGS (1)
  1. LENALIDOMIDE [Suspect]
     Active Substance: LENALIDOMIDE
     Indication: Plasma cell myeloma
     Route: 048

REACTIONS (5)
  - Oxygen saturation decreased [Recovering/Resolving]
  - Balance disorder [Recovering/Resolving]
  - Thrombosis [Recovering/Resolving]
  - Plasma cell myeloma recurrent [Recovering/Resolving]
  - Depression [Not Recovered/Not Resolved]
